FAERS Safety Report 7441002-0 (Version None)
Quarter: 2011Q2

REPORT INFORMATION
  Report Type: 
  Country: None (occurrence: None)
  Receive Date: 20110427
  Receipt Date: 20110418
  Transmission Date: 20111010
  Serious: Yes (Death)
  Sender: FDA-Public Use
  Company Number: JP-GENENTECH-317478

PATIENT
  Age: 64 Year
  Sex: Male

DRUGS (5)
  1. RADICUT [Suspect]
     Indication: PRODUCT USED FOR UNKNOWN INDICATION
     Dosage: 60 MG, UNK
     Route: 041
     Dates: start: 20110331
  2. GRTPA [Suspect]
     Indication: EMBOLIC STROKE
     Dosage: 42.3 ML, UNK
     Route: 042
     Dates: start: 20110331, end: 20110331
  3. HEPARIN SODIUM [Concomitant]
     Indication: PRODUCT USED FOR UNKNOWN INDICATION
     Dosage: UNK
     Route: 041
     Dates: start: 20110402, end: 20110402
  4. GLYCEROL 2.6% [Concomitant]
     Indication: PRODUCT USED FOR UNKNOWN INDICATION
     Dosage: UNK
     Dates: start: 20110401, end: 20110408
  5. DIURETIC NOS [Concomitant]
     Indication: PRODUCT USED FOR UNKNOWN INDICATION

REACTIONS (3)
  - BRAIN OEDEMA [None]
  - CEREBRAL HAEMORRHAGE [None]
  - CEREBRAL INFARCTION [None]
